FAERS Safety Report 8836911 (Version 2)
Quarter: 2012Q4

REPORT INFORMATION
  Report Type: 
  Country: BG (occurrence: BG)
  Receive Date: 20121012
  Receipt Date: 20121026
  Transmission Date: 20130627
  Serious: Yes (Death)
  Sender: FDA-Public Use
  Company Number: BG-ACTELION-A-CH2012-72564

PATIENT
  Age: 26 Year
  Sex: Female
  Weight: 74 kg

DRUGS (5)
  1. TRACLEER [Suspect]
     Indication: PULMONARY ARTERIAL HYPERTENSION
     Dosage: 125 mg, bid
     Route: 048
     Dates: start: 201202, end: 20120831
  2. TRACLEER [Suspect]
     Dosage: 62.5 mg, bid
     Route: 048
     Dates: start: 201201, end: 201202
  3. FURANTHRIL [Concomitant]
  4. SPIRONOLACTON [Concomitant]
  5. SINTROM [Concomitant]

REACTIONS (2)
  - Pulmonary arterial hypertension [Fatal]
  - Condition aggravated [Fatal]
